FAERS Safety Report 9736905 (Version 1)
Quarter: 2013Q4

REPORT INFORMATION
  Report Type: Spontaneous
  Country: US (occurrence: US)
  Receive Date: 20131206
  Receipt Date: 20131206
  Transmission Date: 20140711
  Serious: No
  Sender: FDA-Public Use
  Company Number: US-BIOGENIDEC-2013BI095533

PATIENT
  Sex: Male

DRUGS (11)
  1. TECFIDERA [Suspect]
     Indication: MULTIPLE SCLEROSIS
     Route: 048
     Dates: start: 201306
  2. METOPROLOL-HCTZ [Concomitant]
  3. METOPROLOL-HCTZ [Concomitant]
  4. PRILOSEC [Concomitant]
  5. CATAPRES [Concomitant]
  6. OXYCONTIN [Concomitant]
  7. PREDNISONE [Concomitant]
  8. ATIVAN [Concomitant]
  9. AMITRIPTYLINE HCL [Concomitant]
  10. LYRICA [Concomitant]
  11. EQL CRANBERRY [Concomitant]

REACTIONS (3)
  - Cognitive disorder [Unknown]
  - Fatigue [Unknown]
  - Flushing [Unknown]
